FAERS Safety Report 6137242-3 (Version None)
Quarter: 2009Q1

REPORT INFORMATION
  Report Type: 
  Country: None (occurrence: None)
  Receive Date: 20090330
  Receipt Date: 20090319
  Transmission Date: 20090719
  Serious: Yes (Hospitalization)
  Sender: FDA-Public Use
  Company Number: US-JNJFOC-20090305882

PATIENT
  Sex: Female

DRUGS (2)
  1. INFANTS MYLICON NON-STAINING FORMULA [Suspect]
     Indication: FLATULENCE
     Route: 048
  2. INFANT FORMULA [Suspect]
     Indication: NUTRITIONAL SUPPORT

REACTIONS (6)
  - ANOREXIA [None]
  - DIARRHOEA [None]
  - HYPERHIDROSIS [None]
  - PRODUCT QUALITY ISSUE [None]
  - PYREXIA [None]
  - VOMITING [None]
